FAERS Safety Report 6330309-6 (Version None)
Quarter: 2009Q3

REPORT INFORMATION
  Report Type: 
  Country: None (occurrence: None)
  Receive Date: 20090827
  Receipt Date: 20090716
  Transmission Date: 20100115
  Serious: No
  Sender: FDA-Public Use
  Company Number: US-KINGPHARMUSA00001-K200900850

PATIENT
  Age: 59 Year
  Sex: Male
  Weight: 90.703 kg

DRUGS (1)
  1. FLECTOR [Suspect]
     Indication: TENDONITIS
     Dosage: UNK
     Route: 061
     Dates: start: 20090701, end: 20090711

REACTIONS (2)
  - RASH MACULAR [None]
  - URTICARIA [None]
